FAERS Safety Report 9165005 (Version 1)
Quarter: 2013Q1

REPORT INFORMATION
  Report Type: Spontaneous
  Country: US (occurrence: US)
  Receive Date: 20130315
  Receipt Date: 20130315
  Transmission Date: 20140127
  Serious: Yes (Hospitalization)
  Sender: FDA-Public Use
  Company Number: US-BAYER-2013-030836

PATIENT
  Age: 31 Year
  Sex: Female
  Weight: 86.17 kg

DRUGS (4)
  1. YASMIN [Suspect]
     Indication: CONTRACEPTION
  2. OCELLA [Suspect]
  3. ZARAH [Suspect]
  4. METFORMIN HCL [Concomitant]

REACTIONS (1)
  - Cerebral artery occlusion [None]
